FAERS Safety Report 19401386 (Version 2)
Quarter: 2021Q2

REPORT INFORMATION
  Report Type: Spontaneous
  Country: FR (occurrence: FR)
  Receive Date: 20210610
  Receipt Date: 20210616
  Transmission Date: 20210717
  Serious: Yes (Disabling)
  Sender: FDA-Public Use
  Company Number: NVSC2021FR126348

PATIENT
  Age: 20 Year
  Sex: Female
  Weight: 46 kg

DRUGS (5)
  1. SARILUMAB [Suspect]
     Active Substance: SARILUMAB
     Indication: RHEUMATOID ARTHRITIS
     Dosage: 200 MG, QOW
     Route: 065
     Dates: start: 20210308
  2. SOLUPRED [Concomitant]
     Indication: PRODUCT USED FOR UNKNOWN INDICATION
     Dosage: UNK
     Route: 065
  3. PIROXICAM. [Suspect]
     Active Substance: PIROXICAM
     Indication: PAIN
     Dosage: 1/DAY 3 TO 5 DAYS
     Route: 048
     Dates: start: 202011
  4. ETHINYLESTRADIOL/LEVONORGESTREL [Suspect]
     Active Substance: ETHINYL ESTRADIOL\LEVONORGESTREL
     Indication: CONTRACEPTION
     Dosage: UNK, QD
     Route: 048
     Dates: start: 201810
  5. PANTOPRAZOLE [Suspect]
     Active Substance: PANTOPRAZOLE
     Indication: ABDOMINAL PAIN UPPER
     Dosage: 1/DAY 3 TO 5 DAYS
     Route: 048
     Dates: start: 200211

REACTIONS (6)
  - Aphthous ulcer [Not Recovered/Not Resolved]
  - Mobility decreased [Recovered/Resolved]
  - Mouth ulceration [Not Recovered/Not Resolved]
  - Injection site oedema [Recovered/Resolved]
  - Injection site swelling [Recovered/Resolved]
  - Injection site erythema [Unknown]
